FAERS Safety Report 8538104-4 (Version None)
Quarter: 2012Q3

REPORT INFORMATION
  Report Type: 
  Country: None (occurrence: None)
  Receive Date: 20120725
  Receipt Date: 20120719
  Transmission Date: 20120928
  Serious: Yes (Hospitalization)
  Sender: FDA-Public Use
  Company Number: US-RB-042646-12

PATIENT
  Age: 37 Year
  Sex: Female

DRUGS (2)
  1. SUBOXONE [Suspect]
     Dosage: DOSING DETAILS UNKNOWN.
     Route: 065
  2. SUBOXONE [Suspect]
     Indication: PRODUCT USED FOR UNKNOWN INDICATION
     Dosage: DOSING DETAILS NOT PROVIDED
     Route: 065

REACTIONS (5)
  - HYPERSOMNIA [None]
  - AMMONIA INCREASED [None]
  - DRUG WITHDRAWAL SYNDROME [None]
  - UNDERDOSE [None]
  - DRUG ABUSE [None]
